FAERS Safety Report 11422707 (Version 1)
Quarter: 2015Q3

REPORT INFORMATION
  Report Type: Spontaneous
  Country: US (occurrence: None)
  Receive Date: 20150826
  Receipt Date: 20150826
  Transmission Date: 20151125
  Serious: Yes (Life-Threatening, Hospitalization)
  Sender: FDA-Public Use
  Company Number: None

PATIENT
  Age: 85 Year
  Sex: Male
  Weight: 70 kg

DRUGS (1)
  1. CLOPIDOGREL [Suspect]
     Active Substance: CLOPIDOGREL BISULFATE
     Indication: CARDIAC OPERATION
     Dosage: MG
     Route: 048
     Dates: start: 20150616, end: 20150707

REACTIONS (8)
  - Eosinophilia [None]
  - Drug reaction with eosinophilia and systemic symptoms [None]
  - Leukocytosis [None]
  - Rash erythematous [None]
  - Rash pruritic [None]
  - Leukopenia [None]
  - Drug hypersensitivity [None]
  - Acute kidney injury [None]

NARRATIVE: CASE EVENT DATE: 20150701
